FAERS Safety Report 9357903 (Version 1)
Quarter: 2013Q2

REPORT INFORMATION
  Report Type: Spontaneous
  Country: US (occurrence: None)
  Receive Date: 20130619
  Receipt Date: 20130619
  Transmission Date: 20140414
  Serious: No
  Sender: FDA-Public Use
  Company Number: None

PATIENT
  Age: 59 Year
  Sex: Female
  Weight: 125.19 kg

DRUGS (1)
  1. LEVOTHYROXINE [Suspect]
     Indication: HYPERTHYROIDISM
     Route: 048

REACTIONS (1)
  - Dysphonia [None]
